FAERS Safety Report 25747514 (Version 1)
Quarter: 2025Q3

REPORT INFORMATION
  Report Type: Spontaneous
  Country: AE (occurrence: AE)
  Receive Date: 20250901
  Receipt Date: 20250901
  Transmission Date: 20251020
  Serious: Yes (Life-Threatening)
  Sender: ELI LILLY AND COMPANY
  Company Number: AE-ELI_LILLY_AND_COMPANY-AE202508027181

PATIENT
  Age: 70 Year

DRUGS (6)
  1. KISUNLA [Suspect]
     Active Substance: DONANEMAB-AZBT
     Indication: Product used for unknown indication
     Route: 065
  2. KISUNLA [Suspect]
     Active Substance: DONANEMAB-AZBT
     Route: 065
  3. KISUNLA [Suspect]
     Active Substance: DONANEMAB-AZBT
     Route: 065
  4. KISUNLA [Suspect]
     Active Substance: DONANEMAB-AZBT
     Route: 065
     Dates: start: 20250826
  5. ACETAMINOPHEN [Concomitant]
     Active Substance: ACETAMINOPHEN
     Indication: Premedication
     Route: 065
  6. CORTISONE [Concomitant]
     Active Substance: CORTISONE
     Indication: Premedication
     Route: 065

REACTIONS (1)
  - Infusion related hypersensitivity reaction [Unknown]

NARRATIVE: CASE EVENT DATE: 20250826
